FAERS Safety Report 8014618-0 (Version None)
Quarter: 2011Q4

REPORT INFORMATION
  Report Type: 
  Country: None (occurrence: None)
  Receive Date: 20111229
  Receipt Date: 20111222
  Transmission Date: 20120403
  Serious: No
  Sender: FDA-Public Use
  Company Number: US-B.I. PHARMACEUTICALS,INC./RIDGEFIELD-2011-BP-28699BP

PATIENT
  Sex: Male

DRUGS (6)
  1. ZAROXOLYN [Concomitant]
  2. LISINOPRIL [Concomitant]
  3. BIATA [Concomitant]
     Indication: DIABETES MELLITUS
  4. INSULIN [Concomitant]
     Indication: DIABETES MELLITUS
  5. CATAPRES-TTS-1 [Suspect]
     Indication: HYPERTENSION
     Dosage: 0.6 MG
     Route: 061
     Dates: start: 20050101
  6. PRAVACHOL [Concomitant]
     Indication: BLOOD CHOLESTEROL INCREASED

REACTIONS (3)
  - EAR INFECTION [None]
  - BLOOD PRESSURE SYSTOLIC INCREASED [None]
  - VERTIGO [None]
